FAERS Safety Report 21377415 (Version 1)
Quarter: 2022Q3

REPORT INFORMATION
  Report Type: Spontaneous
  Country: GB (occurrence: GB)
  Receive Date: 20220926
  Receipt Date: 20220926
  Transmission Date: 20221026
  Serious: Yes (Other)
  Sender: FDA-Public Use
  Company Number: None

PATIENT
  Sex: Female
  Weight: 58 kg

DRUGS (9)
  1. CITALOPRAM HYDROBROMIDE [Suspect]
     Active Substance: CITALOPRAM HYDROBROMIDE
     Indication: Product used for unknown indication
     Dates: start: 20220915
  2. CITALOPRAM [Concomitant]
     Active Substance: CITALOPRAM HYDROBROMIDE
     Dosage: UNK, QD
     Dates: start: 20220906
  3. ATORVASTATIN [Concomitant]
     Active Substance: ATORVASTATIN
     Dosage: 1 DF, QD
     Dates: start: 20210907
  4. CLOPIDOGREL [Concomitant]
     Active Substance: CLOPIDOGREL BISULFATE
     Dosage: UNK, QD
     Dates: start: 20210907
  5. GENTAMICIN [Concomitant]
     Active Substance: GENTAMICIN
     Dosage: ONE OR TWO DROPS IN THE AFFECTED EYE
     Dates: start: 20220628, end: 20220705
  6. LISINOPRIL [Concomitant]
     Active Substance: LISINOPRIL
     Dosage: TAKE ONE DAILY ALONGSIDE THE 20MG TABLET
     Dates: start: 20210920
  7. ACETAMINOPHEN [Concomitant]
     Active Substance: ACETAMINOPHEN
     Dosage: TAKE TWO FOUR TIMES/DAY WHEN REQUIRED
     Dates: start: 20190724
  8. PROCHLORPERAZINE [Concomitant]
     Active Substance: PROCHLORPERAZINE
     Dosage: 1 TDS PRN
     Dates: start: 20220718, end: 20220728
  9. CARBOMER [Concomitant]
     Active Substance: CARBOMER
     Dosage: ONE DROP AS NEEDED TO MAINTAIN TEAR FILM
     Dates: start: 20190724

REACTIONS (1)
  - Hypoaesthesia [Recovering/Resolving]

NARRATIVE: CASE EVENT DATE: 20220915
